FAERS Safety Report 25110100 (Version 1)
Quarter: 2025Q1

REPORT INFORMATION
  Report Type: Other
  Country: CN (occurrence: CN)
  Receive Date: 20250324
  Receipt Date: 20250324
  Transmission Date: 20250409
  Serious: Yes (Hospitalization, Other)
  Sender: QILU PHARMACEUTICAL
  Company Number: CN-QILU PHARMACEUTICAL CO.LTD.-QLU-000060-2025

PATIENT
  Age: 52 Year
  Sex: Female
  Weight: 65 kg

DRUGS (4)
  1. CISPLATIN [Suspect]
     Active Substance: CISPLATIN
     Indication: Cholangiocarcinoma
     Dosage: 35 MG ONCE A WEEK (ON DAY 2) PER EVERY 21 DAYS (Q21D)
     Route: 041
     Dates: start: 20250212, end: 20250212
  2. CISPLATIN [Suspect]
     Active Substance: CISPLATIN
     Dosage: 35 MG ONCE A WEEK (ON DAY 9) PER EVERY 21 DAYS (Q21D)
     Route: 041
     Dates: start: 20250219, end: 20250219
  3. GEMCITABINE HYDROCHLORIDE [Suspect]
     Active Substance: GEMCITABINE HYDROCHLORIDE
     Indication: Cholangiocarcinoma
     Dosage: 0.8 G ONCE A WEEK (ON DAY 1) PER EVERY 21 DAYS (Q21D)
     Route: 041
     Dates: start: 20250211, end: 20250211
  4. GEMCITABINE HYDROCHLORIDE [Suspect]
     Active Substance: GEMCITABINE HYDROCHLORIDE
     Dosage: 0.8 G ONCE A WEEK (ON DAY 8) PER EVERY 21 DAYS (Q21D)
     Route: 041
     Dates: start: 20250218, end: 20250218

REACTIONS (2)
  - Keratolysis exfoliativa acquired [Recovered/Resolved]
  - Off label use [Recovered/Resolved]

NARRATIVE: CASE EVENT DATE: 20250212
